FAERS Safety Report 7582228-5 (Version None)
Quarter: 2011Q2

REPORT INFORMATION
  Report Type: 
  Country: None (occurrence: None)
  Receive Date: 20110622
  Receipt Date: 20110525
  Transmission Date: 20111010
  Serious: Yes (Life-Threatening)
  Sender: FDA-Public Use
  Company Number: TRP_07779_2011

PATIENT
  Sex: Female
  Weight: 12.3 kg

DRUGS (9)
  1. SYNOPEN [Concomitant]
  2. AMPHOTERICIN B [Suspect]
     Indication: CANDIDA SEPSIS
     Dosage: 15 MG FOR 1 DAY (7.5 MG) INTRAVENOUS (NOT OTHERWISE SPECIFIED)
     Route: 042
     Dates: start: 20110307, end: 20110307
  3. IBUPROFEN [Concomitant]
  4. SULOTRIM [Concomitant]
  5. EDICIN [Concomitant]
  6. FUROSEMID /00032601/ [Concomitant]
  7. LANITOP [Concomitant]
  8. AZITHROMYCIN [Concomitant]
  9. MEROPENEM [Concomitant]

REACTIONS (8)
  - PYREXIA [None]
  - TACHYCARDIA [None]
  - HYPOTENSION [None]
  - HYPERSENSITIVITY [None]
  - CYANOSIS [None]
  - CHILLS [None]
  - TACHYPNOEA [None]
  - CIRCULATORY COLLAPSE [None]
